FAERS Safety Report 7213379-2 (Version None)
Quarter: 2011Q1

REPORT INFORMATION
  Report Type: 
  Country: None (occurrence: None)
  Receive Date: 20110106
  Receipt Date: 20110104
  Transmission Date: 20110831
  Serious: Yes (Other)
  Sender: FDA-Public Use
  Company Number: US-AMGEN-USASP2011000435

PATIENT

DRUGS (2)
  1. ENBREL [Suspect]
     Indication: RHEUMATOID ARTHRITIS
     Dates: start: 20010201
  2. ENBREL [Suspect]
     Indication: PSORIASIS

REACTIONS (4)
  - VISION BLURRED [None]
  - NECK PAIN [None]
  - RHINORRHOEA [None]
  - PAIN IN EXTREMITY [None]
